FAERS Safety Report 24838075 (Version 1)
Quarter: 2025Q1

REPORT INFORMATION
  Report Type: Spontaneous
  Country: US (occurrence: None)
  Receive Date: 20250112
  Receipt Date: 20250112
  Transmission Date: 20250408
  Serious: Yes (Disabling)
  Sender: FDA-CTU
  Company Number: None

PATIENT
  Age: 33 Year
  Sex: Male
  Weight: 85.5 kg

DRUGS (1)
  1. FINASTERIDE [Suspect]
     Active Substance: FINASTERIDE
     Indication: Alopecia
     Dates: start: 20150715, end: 20211124

REACTIONS (16)
  - Dizziness [None]
  - Insomnia [None]
  - Stress [None]
  - Abdominal distension [None]
  - Head discomfort [None]
  - Erectile dysfunction [None]
  - Hot flush [None]
  - Headache [None]
  - Visual impairment [None]
  - Aphasia [None]
  - Balance disorder [None]
  - Brain fog [None]
  - Disturbance in attention [None]
  - Oligodipsia [None]
  - Apathy [None]
  - Photosensitivity reaction [None]

NARRATIVE: CASE EVENT DATE: 20211124
